FAERS Safety Report 7677592-2 (Version None)
Quarter: 2011Q3

REPORT INFORMATION
  Report Type: 
  Country: None (occurrence: None)
  Receive Date: 20110811
  Receipt Date: 20110811
  Transmission Date: 20111222
  Serious: Yes (Other)
  Sender: FDA-Public Use
  Company Number: None

PATIENT
  Age: 51 Year
  Sex: Female
  Weight: 153.31 kg

DRUGS (1)
  1. TOPIRAMATE [Suspect]
     Indication: NEUROPATHY PERIPHERAL
     Dosage: 1 TABLET
     Route: 048
     Dates: start: 20100813, end: 20110718

REACTIONS (4)
  - URINE ODOUR ABNORMAL [None]
  - URINARY INCONTINENCE [None]
  - FAMILY STRESS [None]
  - POLLAKIURIA [None]
